FAERS Safety Report 17408306 (Version 1)
Quarter: 2020Q1

REPORT INFORMATION
  Report Type: Spontaneous
  Country: BR (occurrence: BR)
  Receive Date: 20200212
  Receipt Date: 20200212
  Transmission Date: 20200409
  Serious: Yes (Other)
  Sender: FDA-Public Use
  Company Number: BR-GLAXOSMITHKLINE-BR2019AMR239494

PATIENT
  Sex: Female
  Weight: 67 kg

DRUGS (1)
  1. NEOTIGASON [Suspect]
     Active Substance: ACITRETIN
     Indication: KERATOSIS FOLLICULAR
     Dosage: 50 MG, QD  (NEOTIGASON 10 MG AND 25 MG, STARTED WHEN SHE WAS 18 YEARS OLD SHE WAS USING 20 MG ON WEA
     Route: 048

REACTIONS (1)
  - Thyroid cancer [Recovered/Resolved]
